FAERS Safety Report 5583105-1 (Version None)
Quarter: 2008Q1

REPORT INFORMATION
  Report Type: 
  Country: None (occurrence: None)
  Receive Date: 20080107
  Receipt Date: 20071224
  Transmission Date: 20080703
  Serious: Yes (Hospitalization, Other)
  Sender: FDA-Public Use
  Company Number: GB-KINGPHARMUSA00001-K200701645

PATIENT

DRUGS (10)
  1. SEPTRA [Suspect]
  2. COMBIVIR [Suspect]
  3. EFAVIRENZ [Suspect]
  4. CLARITHROMYCIN [Suspect]
     Indication: CHEST DISCOMFORT
  5. CIPROFLOXACIN [Suspect]
     Indication: CHEST DISCOMFORT
  6. IBUPROFEN [Suspect]
     Indication: PAIN IN EXTREMITY
  7. NEVIRAPINE [Suspect]
  8. TENOFOVIR [Suspect]
  9. LAMIVUDINE [Suspect]
  10. LOPERAMIDE HCL [Concomitant]
     Indication: DIARRHOEA

REACTIONS (7)
  - AGITATION [None]
  - BLOOD ALKALINE PHOSPHATASE INCREASED [None]
  - BLOOD BILIRUBIN INCREASED [None]
  - JAUNDICE [None]
  - PYREXIA [None]
  - VANISHING BILE DUCT SYNDROME [None]
  - VOMITING [None]
